FAERS Safety Report 8572157-2 (Version None)
Quarter: 2012Q3

REPORT INFORMATION
  Report Type: 
  Country: None (occurrence: None)
  Receive Date: 20120806
  Receipt Date: 20120726
  Transmission Date: 20120928
  Serious: Yes (Hospitalization)
  Sender: FDA-Public Use
  Company Number: HU-US-EMD SERONO, INC.-7101341

PATIENT
  Sex: Male
  Weight: 70 kg

DRUGS (2)
  1. REBIF [Suspect]
     Indication: RELAPSING-REMITTING MULTIPLE SCLEROSIS
     Route: 058
     Dates: start: 20000101, end: 20120220
  2. REBIF [Suspect]
     Route: 058
     Dates: start: 20120625

REACTIONS (2)
  - TESTICULAR GERM CELL CANCER [None]
  - MULTIPLE SCLEROSIS RELAPSE [None]
